FAERS Safety Report 7587025-2 (Version None)
Quarter: 2011Q3

REPORT INFORMATION
  Report Type: 
  Country: None (occurrence: None)
  Receive Date: 20110701
  Receipt Date: 20110621
  Transmission Date: 20111222
  Serious: Yes (Other)
  Sender: FDA-Public Use
  Company Number: GB-MYLANLABS-2011S1012908

PATIENT
  Sex: Female

DRUGS (2)
  1. OMEPRAZOLE [Suspect]
     Indication: GASTROOESOPHAGEAL REFLUX DISEASE
  2. OMEPRAZOLE [Suspect]

REACTIONS (3)
  - BLOOD PRESSURE ABNORMAL [None]
  - IRON DEFICIENCY [None]
  - DYSPNOEA [None]
